FAERS Safety Report 5874595-5 (Version None)
Quarter: 2008Q3

REPORT INFORMATION
  Report Type: 
  Country: None (occurrence: None)
  Receive Date: 20080905
  Receipt Date: 20080905
  Transmission Date: 20090109
  Serious: Yes (Hospitalization)
  Sender: FDA-Public Use
  Company Number: None

PATIENT
  Sex: Female
  Weight: 55.1 kg

DRUGS (1)
  1. TEMOZOLOMIDE [Suspect]
     Dosage: 2015 MG

REACTIONS (1)
  - LYMPHOCYTE COUNT DECREASED [None]
